FAERS Safety Report 6933678-9 (Version None)
Quarter: 2010Q3

REPORT INFORMATION
  Report Type: 
  Country: None (occurrence: None)
  Receive Date: 20100820
  Receipt Date: 20100813
  Transmission Date: 20110219
  Serious: Yes (Death)
  Sender: FDA-Public Use
  Company Number: US-PFIZER INC-2010102550

PATIENT
  Age: 24 Year
  Sex: Male

DRUGS (4)
  1. ALPRAZOLAM [Suspect]
     Dosage: UNK
  2. OXYCODONE [Suspect]
     Dosage: UNK
  3. HEROIN [Suspect]
     Dosage: UNK
  4. METHADONE [Suspect]
     Dosage: UNK

REACTIONS (1)
  - DRUG TOXICITY [None]
